FAERS Safety Report 4614253-8 (Version None)
Quarter: 2005Q1

REPORT INFORMATION
  Report Type: 
  Country: None (occurrence: None)
  Receive Date: 20050315
  Receipt Date: 20050301
  Transmission Date: 20050727
  Serious: Yes (Other)
  Sender: FDA-Public Use
  Company Number: 004198

PATIENT
  Age: 26 Year
  Sex: Female
  Weight: 65.8 kg

DRUGS (1)
  1. SEASONALE [Suspect]
     Indication: ORAL CONTRACEPTION
     Dosage: 1.00 TABLET, QD, ORAL
     Route: 048
     Dates: start: 20040201, end: 20050214

REACTIONS (7)
  - ABORTION SPONTANEOUS [None]
  - METRORRHAGIA [None]
  - PELVIC PAIN [None]
  - PLACENTAL DISORDER [None]
  - POST PROCEDURAL HAEMATOMA [None]
  - PREGNANCY ON ORAL CONTRACEPTIVE [None]
  - THROMBOSIS [None]
